FAERS Safety Report 21788300 (Version 1)
Quarter: 2022Q4

REPORT INFORMATION
  Report Type: Spontaneous
  Country: IT (occurrence: IT)
  Receive Date: 20221228
  Receipt Date: 20221228
  Transmission Date: 20230113
  Serious: Yes (Other)
  Sender: FDA-Public Use
  Company Number: IT-MYLANLABS-2022M1144444

PATIENT

DRUGS (1)
  1. ACETAMINOPHEN [Suspect]
     Active Substance: ACETAMINOPHEN
     Indication: Product used for unknown indication
     Dosage: 76 MILLIGRAM/KILOGRAM (PARACETAMOL STRENGTH: 10 MG/ML SOLUTION)
     Route: 042

REACTIONS (4)
  - Accidental overdose [Unknown]
  - Product dose confusion [Unknown]
  - Dose calculation error [Unknown]
  - Incorrect dose administered [Unknown]
